FAERS Safety Report 10408921 (Version 2)
Quarter: 2014Q3

REPORT INFORMATION
  Report Type: Spontaneous
  Country: IT (occurrence: None)
  Receive Date: 20140822
  Receipt Date: 20140827
  Transmission Date: 20150326
  Serious: Yes (Hospitalization, Other)
  Sender: FDA-Public Use
  Company Number: AUR-APL-2014-08791

PATIENT
  Age: 87 Year
  Sex: Female

DRUGS (9)
  1. FERRO GRAD (FERROUS SULFATE) PROLONGED-RELEASE TABLET [Concomitant]
  2. ALLOPURINOL (ALLOPURINOL) [Concomitant]
     Active Substance: ALLOPURINOL
  3. PANTOPRAZOLE (PANTOPRAZOLE) [Concomitant]
     Active Substance: PANTOPRAZOLE SODIUM
  4. ATORVASTATIN (ATORVASTATIN) [Concomitant]
     Active Substance: ATORVASTATIN
  5. LEVOFLOXACIN [Suspect]
     Active Substance: LEVOFLOXACIN
     Indication: BRONCHITIS
     Route: 048
     Dates: start: 20140610, end: 20140615
  6. OLMESARTAN MEDOXOMIL (OLMESARTAN MEDOXOMIL) [Concomitant]
  7. CEFTRIAXONE. [Suspect]
     Active Substance: CEFTRIAXONE
     Indication: BRONCHITIS
     Route: 030
     Dates: start: 20140616, end: 20140623
  8. GLIBENCLAMIDE (GLIBENCLAMIDE) [Concomitant]
     Active Substance: GLYBURIDE
  9. FUROSEMIDE (FUROSEMIDE) [Concomitant]
     Active Substance: FUROSEMIDE

REACTIONS (8)
  - Asthenia [None]
  - Renal failure [None]
  - Gait disturbance [None]
  - Gravitational oedema [None]
  - Hypotension [None]
  - Fatigue [None]
  - Incorrect route of drug administration [None]
  - Decreased appetite [None]

NARRATIVE: CASE EVENT DATE: 20140625
